FAERS Safety Report 4722844-9 (Version None)
Quarter: 2005Q3

REPORT INFORMATION
  Report Type: 
  Country: None (occurrence: None)
  Receive Date: 20050722
  Receipt Date: 20050324
  Transmission Date: 20060218
  Serious: Yes (Other)
  Sender: FDA-Public Use
  Company Number: SER/8/3929

PATIENT
  Sex: Male

DRUGS (2)
  1. PAROXETINE HCL [Suspect]
     Indication: ANXIETY
     Dates: start: 20010101
  2. PAROXETINE HCL [Suspect]
     Indication: DEPRESSION
     Dates: start: 20010101

REACTIONS (7)
  - AGGRESSION [None]
  - CONDITION AGGRAVATED [None]
  - DRUG WITHDRAWAL SYNDROME [None]
  - ILL-DEFINED DISORDER [None]
  - MUSCLE TWITCHING [None]
  - NERVOUSNESS [None]
  - SUICIDAL IDEATION [None]
